FAERS Safety Report 12255649 (Version 1)
Quarter: 2016Q2

REPORT INFORMATION
  Report Type: Spontaneous
  Country: US (occurrence: None)
  Receive Date: 20160411
  Receipt Date: 20160411
  Transmission Date: 20160815
  Serious: Yes (Congenital Anomaly)
  Sender: FDA-Public Use
  Company Number: None

PATIENT
  Age: 44 Year
  Sex: Female

DRUGS (2)
  1. ZOFRAN [Suspect]
     Active Substance: ONDANSETRON HYDROCHLORIDE
     Indication: HYPEREMESIS GRAVIDARUM
     Route: 042
     Dates: start: 20020128, end: 20020803
  2. ZOFRAN [Suspect]
     Active Substance: ONDANSETRON HYDROCHLORIDE
     Indication: HYPEREMESIS GRAVIDARUM
     Dosage: 8 TABLET(S) AS NEEDED TAKEN BY MOUTH
     Route: 048
     Dates: start: 20020202, end: 20020803

REACTIONS (2)
  - Foetal malformation [None]
  - Exposure during pregnancy [None]

NARRATIVE: CASE EVENT DATE: 20020128
